FAERS Safety Report 10947312 (Version 1)
Quarter: 2015Q1

REPORT INFORMATION
  Report Type: Spontaneous
  Country: US (occurrence: US)
  Receive Date: 20150323
  Receipt Date: 20150323
  Transmission Date: 20150721
  Serious: Yes (Death, Hospitalization)
  Sender: FDA-Public Use
  Company Number: US-TEVA-548855USA

PATIENT

DRUGS (1)
  1. VENLAFAXINE [Suspect]
     Active Substance: VENLAFAXINE HYDROCHLORIDE
     Indication: OVERDOSE
     Route: 048

REACTIONS (9)
  - Cardiac arrest [Fatal]
  - Unresponsive to stimuli [Unknown]
  - Overdose [Fatal]
  - Ventricular fibrillation [Unknown]
  - Bradycardia [Unknown]
  - Dyskinesia [Unknown]
  - Aphasia [Unknown]
  - Cardiac failure [Unknown]
  - Agitation [Unknown]
